FAERS Safety Report 25100441 (Version 1)
Quarter: 2025Q1

REPORT INFORMATION
  Report Type: Spontaneous
  Country: US (occurrence: US)
  Receive Date: 20250320
  Receipt Date: 20250320
  Transmission Date: 20250408
  Serious: Yes (Other)
  Sender: PFIZER
  Company Number: US-PFIZER INC-202500060083

PATIENT
  Sex: Male

DRUGS (1)
  1. TALZENNA [Suspect]
     Active Substance: TALAZOPARIB TOSYLATE

REACTIONS (3)
  - Thrombocytopenia [Unknown]
  - Anaemia [Unknown]
  - Prostatic specific antigen increased [Unknown]
